FAERS Safety Report 12293467 (Version 1)
Quarter: 2016Q2

REPORT INFORMATION
  Report Type: Report from Study
  Country: US (occurrence: US)
  Receive Date: 20160421
  Receipt Date: 20160421
  Transmission Date: 20160815
  Serious: No
  Sender: FDA-Public Use
  Company Number: PHEH2016US009160

PATIENT
  Sex: Female

DRUGS (1)
  1. COSENTYX [Suspect]
     Active Substance: SECUKINUMAB
     Indication: PSORIASIS
     Dosage: 300 MG, UNK
     Route: 058

REACTIONS (6)
  - Abdominal pain [Unknown]
  - Photosensitivity reaction [Unknown]
  - Abdominal pain upper [Unknown]
  - Nausea [Unknown]
  - Frequent bowel movements [Unknown]
  - Therapeutic response unexpected [Unknown]
